FAERS Safety Report 10298334 (Version 1)
Quarter: 2014Q3

REPORT INFORMATION
  Report Type: Spontaneous
  Country: US (occurrence: US)
  Receive Date: 20140711
  Receipt Date: 20140711
  Transmission Date: 20150326
  Serious: No
  Sender: FDA-Public Use
  Company Number: US-GLAXOSMITHKLINE-A1069786A

PATIENT
  Age: 65 Year
  Sex: Female

DRUGS (3)
  1. EPIPEN [Concomitant]
     Active Substance: EPINEPHRINE
  2. FLOVENT [Suspect]
     Active Substance: FLUTICASONE PROPIONATE
     Indication: PRODUCT USED FOR UNKNOWN INDICATION
     Route: 065
  3. ATROVENT [Suspect]
     Active Substance: IPRATROPIUM BROMIDE
     Indication: BRONCHIAL HYPERREACTIVITY
     Route: 065

REACTIONS (1)
  - Drug prescribing error [Unknown]
